FAERS Safety Report 6244381-5 (Version None)
Quarter: 2009Q2

REPORT INFORMATION
  Report Type: 
  Country: None (occurrence: None)
  Receive Date: 20090623
  Receipt Date: 20090615
  Transmission Date: 20091009
  Serious: Yes (Hospitalization)
  Sender: FDA-Public Use
  Company Number: GXKR2009NL06954

PATIENT
  Age: 29 Year
  Sex: Female

DRUGS (8)
  1. CLOZAPINE [Suspect]
     Indication: PSYCHOTIC DISORDER
     Dosage: 500 MG/DAY, ORAL
     Route: 048
     Dates: start: 20080201, end: 20090501
  2. CLOZAPINE [Suspect]
     Indication: PSYCHOTIC DISORDER
     Dosage: 500 MG/DAY, ORAL
     Route: 048
     Dates: start: 20070101
  3. TRYPTIZOL (AMITRIPTYLINE HYDROCHLORIDE) TABLET [Concomitant]
  4. ZOPICLON (ZOPICLONE) TABLET [Concomitant]
  5. DIAZEPAM [Concomitant]
  6. PERIACTIN (CYPROHEPATADINE HYDROCHLORIDE) TABLET [Concomitant]
  7. BIPERIDEN (BIPERIDEN) TABLET [Concomitant]
  8. HALOPERIDOL (HALOPERIDOL) TABLET [Concomitant]

REACTIONS (4)
  - DISSOCIATION [None]
  - HYPOTONIA [None]
  - PARKINSONISM [None]
  - SUICIDE ATTEMPT [None]
